FAERS Safety Report 5843230-4 (Version None)
Quarter: 2008Q3

REPORT INFORMATION
  Report Type: 
  Country: None (occurrence: None)
  Receive Date: 20080813
  Receipt Date: 20080805
  Transmission Date: 20090109
  Serious: Yes (Hospitalization, Other)
  Sender: FDA-Public Use
  Company Number: PHHY2008ZA14849

PATIENT
  Age: 68 Year
  Sex: Female

DRUGS (4)
  1. DIOVAN [Suspect]
     Indication: HYPERTENSION
     Dosage: 80 MG, UNK
  2. DIOVAN [Suspect]
     Dosage: 160 MG, UNK
  3. PUR-BLOKA [Concomitant]
  4. ELTROXIN ^GLAXO^ [Concomitant]

REACTIONS (4)
  - BLADDER OPERATION [None]
  - HAEMORRHAGE [None]
  - HERNIA REPAIR [None]
  - HYPOTENSION [None]
